FAERS Safety Report 8230505-7 (Version None)
Quarter: 2012Q1

REPORT INFORMATION
  Report Type: 
  Country: None (occurrence: None)
  Receive Date: 20120323
  Receipt Date: 20120315
  Transmission Date: 20120608
  Serious: Yes (Other)
  Sender: FDA-Public Use
  Company Number: US-BAYER-2012-003038

PATIENT
  Age: 32 Year
  Sex: Female

DRUGS (7)
  1. XANAX [Concomitant]
     Indication: DEPRESSION
  2. EFFEXOR [Concomitant]
  3. YAZ [Suspect]
     Dosage: UNK
     Dates: start: 20080601
  4. SEROQUEL [Concomitant]
     Dosage: 100 MG, UNK
     Route: 048
  5. OMEPRAZOLE [Concomitant]
     Dosage: 20 MG, UNK
     Route: 048
  6. BUSPAR [Concomitant]
     Indication: ANXIETY
  7. VENLAFAXINE HCL [Concomitant]
     Dosage: 37.5 MG, UNK
     Route: 048

REACTIONS (5)
  - PAIN [None]
  - PULMONARY EMBOLISM [None]
  - PULMONARY INFARCTION [None]
  - VENA CAVA THROMBOSIS [None]
  - INJURY [None]
